FAERS Safety Report 5962819-5 (Version None)
Quarter: 2008Q4

REPORT INFORMATION
  Report Type: 
  Country: None (occurrence: None)
  Receive Date: 20081124
  Receipt Date: 20081121
  Transmission Date: 20090506
  Serious: Yes (Hospitalization)
  Sender: FDA-Public Use
  Company Number: AU-WYE-G02560208

PATIENT
  Age: 32 Year
  Sex: Female
  Weight: 68 kg

DRUGS (2)
  1. EFFEXOR XR [Suspect]
     Indication: DEPRESSION
     Dosage: 75 MG X 1 CAPSULE IN THE MORNING
     Route: 048
     Dates: start: 20081014, end: 20081023
  2. DI-GESIC [Concomitant]
     Indication: ARTHRALGIA
     Dosage: 4 TABLETS DAILY
     Route: 048
     Dates: start: 20081001, end: 20080101

REACTIONS (6)
  - ATAXIA [None]
  - DIZZINESS [None]
  - DRY MOUTH [None]
  - DYSARTHRIA [None]
  - MYDRIASIS [None]
  - SOMNOLENCE [None]
